FAERS Safety Report 6569221-6 (Version None)
Quarter: 2010Q1

REPORT INFORMATION
  Report Type: 
  Country: None (occurrence: None)
  Receive Date: 20100201
  Receipt Date: 20100201
  Transmission Date: 20100710
  Serious: No
  Sender: FDA-Public Use
  Company Number: None

PATIENT
  Age: 52 Year
  Sex: Female
  Weight: 64.4108 kg

DRUGS (1)
  1. CALCIUM CARBONATE [Suspect]
     Indication: GASTRIC DISORDER
     Dosage: 2 TABLETS PO (ONE TIME USE ON JAN 25)
     Route: 048

REACTIONS (3)
  - DIARRHOEA [None]
  - MALAISE [None]
  - VOMITING [None]
